FAERS Safety Report 7960193-6 (Version None)
Quarter: 2011Q4

REPORT INFORMATION
  Report Type: 
  Country: None (occurrence: None)
  Receive Date: 20111206
  Receipt Date: 20111201
  Transmission Date: 20120403
  Serious: Yes (Hospitalization)
  Sender: FDA-Public Use
  Company Number: PHHY2011BR097486

PATIENT
  Sex: Female

DRUGS (2)
  1. VOLTAREN [Suspect]
     Indication: PAIN
     Dosage: 75 MG/3 ML, 2 OR 3 TIMES APPROXIMATELY
     Dates: start: 20111101
  2. ANTIHYPERTENSIVE DRUGS [Concomitant]

REACTIONS (3)
  - MALAISE [None]
  - DIZZINESS [None]
  - OXYGEN SATURATION DECREASED [None]
